FAERS Safety Report 23776999 (Version 11)
Quarter: 2025Q2

REPORT INFORMATION
  Report Type: Report from Study
  Country: CA (occurrence: CA)
  Receive Date: 20240424
  Receipt Date: 20250429
  Transmission Date: 20250716
  Serious: Yes (Other)
  Sender: JOHNSON AND JOHNSON
  Company Number: CA-JNJFOC-20240323666

PATIENT
  Age: 34 Year
  Sex: Female

DRUGS (9)
  1. REMICADE [Suspect]
     Active Substance: INFLIXIMAB
     Indication: Crohn^s disease
     Dosage: EXP:MA-2027
     Route: 041
  2. REMICADE [Suspect]
     Active Substance: INFLIXIMAB
     Indication: Colitis ulcerative
     Dosage: LAST DOSE RECEIVED ON 05-MAR-2024?EXPIRY DATE: NOV/2026
     Route: 041
     Dates: start: 20120220
  3. REMICADE [Suspect]
     Active Substance: INFLIXIMAB
     Dosage: EXPIRY DATE:  FE-2027 X4VIALS
     Route: 041
  4. REMICADE [Suspect]
     Active Substance: INFLIXIMAB
     Dosage: EXPIRY DATE: MR-2027; BATCH NUMBER: 24B067 E: FE27X2
     Route: 041
  5. REMICADE [Suspect]
     Active Substance: INFLIXIMAB
     Route: 041
  6. EFFEXOR [Suspect]
     Active Substance: VENLAFAXINE HYDROCHLORIDE
     Indication: Anxiety
     Route: 048
  7. ZINC [Concomitant]
     Active Substance: ZINC
  8. VITAMIN D3 [Concomitant]
     Active Substance: CHOLECALCIFEROL
  9. LYRICA [Concomitant]
     Active Substance: PREGABALIN

REACTIONS (12)
  - Constipation [Recovered/Resolved]
  - Polycystic ovarian syndrome [Not Recovered/Not Resolved]
  - Endometriosis [Unknown]
  - Bone scan abnormal [Not Recovered/Not Resolved]
  - Spinal cord compression [Not Recovered/Not Resolved]
  - Intra-abdominal fluid collection [Not Recovered/Not Resolved]
  - Rosacea [Recovering/Resolving]
  - Back injury [Unknown]
  - Otitis externa [Recovered/Resolved]
  - Procedural pain [Recovered/Resolved]
  - Anxiety [Unknown]
  - Inflammation [Not Recovered/Not Resolved]

NARRATIVE: CASE EVENT DATE: 20240301
